FAERS Safety Report 17062094 (Version 1)
Quarter: 2019Q4

REPORT INFORMATION
  Report Type: Spontaneous
  Country: NZ (occurrence: NZ)
  Receive Date: 20191122
  Receipt Date: 20191122
  Transmission Date: 20200122
  Serious: Yes (Other)
  Sender: FDA-Public Use
  Company Number: ALC2019NZ001668

PATIENT

DRUGS (1)
  1. SYSTANE BALANCE [Suspect]
     Active Substance: PROPYLENE GLYCOL
     Indication: FOREIGN BODY IN EYE
     Dosage: UNK
     Route: 065
     Dates: start: 20191112

REACTIONS (5)
  - Eye burns [Unknown]
  - Blindness [Unknown]
  - Corneal abrasion [Unknown]
  - Product odour abnormal [Unknown]
  - Eye irritation [Unknown]

NARRATIVE: CASE EVENT DATE: 20191112
